FAERS Safety Report 6530924-0 (Version None)
Quarter: 2010Q1

REPORT INFORMATION
  Report Type: 
  Country: None (occurrence: None)
  Receive Date: 20100108
  Receipt Date: 20090608
  Transmission Date: 20100710
  Serious: No
  Sender: FDA-Public Use
  Company Number: A0789404A

PATIENT
  Sex: Female

DRUGS (10)
  1. LOVAZA [Suspect]
     Dosage: 4CAP PER DAY
     Route: 048
     Dates: start: 20090513, end: 20090601
  2. ADVAIR DISKUS 100/50 [Concomitant]
  3. OXYCODONE [Concomitant]
  4. RISPERDAL [Concomitant]
  5. PROMETHAZINE [Concomitant]
     Indication: NAUSEA
  6. RANITIDINE [Concomitant]
  7. VITAMINS [Concomitant]
  8. PREDNISONE [Concomitant]
  9. GLUMETZA [Concomitant]
  10. SEPTRA [Concomitant]

REACTIONS (3)
  - NAUSEA [None]
  - PRURITUS [None]
  - RASH [None]
